FAERS Safety Report 10872847 (Version 1)
Quarter: 2015Q1

REPORT INFORMATION
  Report Type: Spontaneous
  Country: US (occurrence: US)
  Receive Date: 20150227
  Receipt Date: 20150227
  Transmission Date: 20150721
  Serious: Yes (Other)
  Sender: FDA-Public Use
  Company Number: US-TEVA-543487USA

PATIENT
  Age: 29 Year
  Sex: Female

DRUGS (2)
  1. CLARAVIS [Suspect]
     Active Substance: ISOTRETINOIN
     Dates: start: 20120928
  2. CLARAVIS [Suspect]
     Active Substance: ISOTRETINOIN
     Dates: start: 20140327, end: 20140427

REACTIONS (1)
  - Abortion spontaneous [Unknown]
